FAERS Safety Report 7199304-1 (Version None)
Quarter: 2010Q4

REPORT INFORMATION
  Report Type: 
  Country: None (occurrence: None)
  Receive Date: 20101228
  Receipt Date: 20101220
  Transmission Date: 20110411
  Serious: Yes (Death, Hospitalization)
  Sender: FDA-Public Use
  Company Number: PT-CELGENEUS-130-21880-10101989

PATIENT
  Sex: Female
  Weight: 66 kg

DRUGS (9)
  1. REVLIMID [Suspect]
     Indication: MULTIPLE MYELOMA
     Route: 048
     Dates: start: 20100306
  2. REVLIMID [Suspect]
     Route: 048
     Dates: start: 20100918, end: 20100930
  3. DEXAMETHASONE [Suspect]
     Indication: MULTIPLE MYELOMA
     Route: 048
     Dates: start: 20100306
  4. DEXAMETHASONE [Suspect]
     Route: 048
     Dates: start: 20100918, end: 20100930
  5. PAMIDRONATE DISODIUM [Concomitant]
     Indication: SUPPORTIVE CARE
     Route: 051
     Dates: start: 20100306, end: 20100917
  6. OMEPRAZOLE [Concomitant]
     Indication: PROPHYLAXIS
     Route: 048
     Dates: start: 20100306, end: 20101001
  7. AAS [Concomitant]
     Route: 048
     Dates: start: 20100306, end: 20100930
  8. ARANESP [Concomitant]
     Indication: ANAEMIA
     Route: 058
     Dates: start: 20100820, end: 20100930
  9. FUROSEMIDE [Concomitant]
     Route: 048
     Dates: start: 20100825, end: 20100930

REACTIONS (1)
  - SEPTIC SHOCK [None]
